FAERS Safety Report 17168062 (Version 3)
Quarter: 2020Q1

REPORT INFORMATION
  Report Type: Spontaneous
  Country: US (occurrence: US)
  Receive Date: 20191218
  Receipt Date: 20200114
  Transmission Date: 20200409
  Serious: No
  Sender: FDA-Public Use
  Company Number: US-DSJP-DSU-2019-149727

PATIENT

DRUGS (2)
  1. TURALIO [Suspect]
     Active Substance: PEXIDARTINIB HYDROCHLORIDE
     Dosage: 400 MG, BID
     Route: 048
     Dates: start: 20191206
  2. TURALIO [Suspect]
     Active Substance: PEXIDARTINIB HYDROCHLORIDE
     Indication: CARTILAGE NEOPLASM
     Dosage: 400 MG, BID
     Route: 048
     Dates: start: 20191204, end: 20191205

REACTIONS (6)
  - Off label use [Not Recovered/Not Resolved]
  - Cough [Unknown]
  - Ear pain [Unknown]
  - Lymphadenopathy [Unknown]
  - Dyspepsia [Not Recovered/Not Resolved]
  - Product dose omission [Unknown]

NARRATIVE: CASE EVENT DATE: 2019
